FAERS Safety Report 15490020 (Version 4)
Quarter: 2018Q4

REPORT INFORMATION
  Report Type: Spontaneous
  Country: US (occurrence: US)
  Receive Date: 20181011
  Receipt Date: 20181116
  Transmission Date: 20190205
  Serious: Yes (Death, Hospitalization, Other)
  Sender: FDA-Public Use
  Company Number: US-UNITED THERAPEUTICS-UNT-2018-016399

PATIENT
  Age: 65 Year
  Sex: Female
  Weight: 96.6 kg

DRUGS (2)
  1. AMLODIPINE [Concomitant]
     Active Substance: AMLODIPINE BESYLATE
     Indication: PRODUCT USED FOR UNKNOWN INDICATION
     Route: 065
  2. REMODULIN [Suspect]
     Active Substance: TREPROSTINIL
     Indication: PULMONARY ARTERIAL HYPERTENSION
     Dosage: 0.028 ?G/KG, CONTINUING
     Route: 058
     Dates: start: 20180625

REACTIONS (6)
  - Hypotension [Unknown]
  - Acute kidney injury [Unknown]
  - Product administration interrupted [Recovered/Resolved]
  - Dyspnoea [Unknown]
  - General physical health deterioration [Fatal]
  - Myocardial infarction [Unknown]

NARRATIVE: CASE EVENT DATE: 2018
